FAERS Safety Report 4838399-4 (Version None)
Quarter: 2005Q4

REPORT INFORMATION
  Report Type: 
  Country: None (occurrence: None)
  Receive Date: 20051123
  Receipt Date: 20051110
  Transmission Date: 20060501
  Serious: Yes (Hospitalization)
  Sender: FDA-Public Use
  Company Number: 2005156819

PATIENT
  Age: 49 Year
  Sex: Female

DRUGS (3)
  1. GEODON [Suspect]
     Indication: ILL-DEFINED DISORDER
     Dosage: 80 UNK (2 IN 1 D)
  2. SEROQUEL [Suspect]
     Indication: ILL-DEFINED DISORDER
  3. BENZODIAZEPINE DERIVATIVES (BENZODIAZEPINE DERIVATIVES) [Suspect]
     Indication: ILL-DEFINED DISORDER

REACTIONS (1)
  - OVERDOSE [None]
